FAERS Safety Report 4588759-4 (Version None)
Quarter: 2005Q1

REPORT INFORMATION
  Report Type: 
  Country: None (occurrence: None)
  Receive Date: 20050222
  Receipt Date: 20050210
  Transmission Date: 20050727
  Serious: Yes (Life-Threatening, Hospitalization)
  Sender: FDA-Public Use
  Company Number: GB-JNJFOC-20050203133

PATIENT
  Age: 10 Year
  Sex: Female
  Weight: 34.8 kg

DRUGS (17)
  1. SPORANOX [Suspect]
     Indication: BRONCHOPULMONARY ASPERGILLOSIS ALLERGIC
     Route: 065
     Dates: start: 20040714, end: 20050120
  2. SERETIDE [Interacting]
     Route: 055
     Dates: start: 20041208, end: 20050112
  3. SERETIDE [Interacting]
     Indication: CYSTIC FIBROSIS
     Route: 055
     Dates: start: 20041208, end: 20050112
  4. FLUTICASONE PROPIONATE [Interacting]
     Route: 055
  5. FLUTICASONE PROPIONATE [Interacting]
     Indication: DRUG USE FOR UNKNOWN INDICATION
     Dosage: 125 - 250 MCG BID.
     Route: 055
  6. VITAMIN E ACETATE [Concomitant]
     Indication: CYSTIC FIBROSIS
     Route: 049
  7. URSODEOXYCHOLIC ACID [Concomitant]
     Indication: CYSTIC FIBROSIS
     Route: 049
  8. CEFACLOR [Concomitant]
     Indication: CYSTIC FIBROSIS
     Route: 049
  9. ABDEC [Concomitant]
     Route: 049
  10. ABDEC [Concomitant]
     Route: 049
  11. ABDEC [Concomitant]
     Route: 049
  12. ABDEC [Concomitant]
     Route: 049
  13. ABDEC [Concomitant]
     Route: 049
  14. ABDEC [Concomitant]
     Indication: CYSTIC FIBROSIS
     Route: 049
  15. TOBI [Concomitant]
     Indication: CYSTIC FIBROSIS
  16. PREDNISOLONE [Concomitant]
     Indication: CYSTIC FIBROSIS
     Dosage: SHORT COURSES SINCE 03
  17. CREON [Concomitant]
     Indication: CYSTIC FIBROSIS
     Dosage: '10,000' -30/DAY
     Route: 049

REACTIONS (3)
  - DRUG INTERACTION [None]
  - GROWTH RETARDATION [None]
  - PITUITARY-DEPENDENT CUSHING'S SYNDROME [None]
